FAERS Safety Report 9428591 (Version 1)
Quarter: 2013Q3

REPORT INFORMATION
  Report Type: Report from Study
  Country: US (occurrence: US)
  Receive Date: 20130730
  Receipt Date: 20130730
  Transmission Date: 20140515
  Serious: No
  Sender: FDA-Public Use
  Company Number: US-ABBOTT-12P-163-1021851-00

PATIENT
  Sex: Male
  Weight: 81.27 kg

DRUGS (4)
  1. NIASPAN (COATED) [Suspect]
     Indication: BLOOD CHOLESTEROL ABNORMAL
     Dates: start: 201111
  2. SIMCOR [Suspect]
     Indication: BLOOD CHOLESTEROL ABNORMAL
     Dates: end: 201110
  3. ASA [Concomitant]
     Indication: PRODUCT USED FOR UNKNOWN INDICATION
  4. LIPITOR [Concomitant]
     Indication: PRODUCT USED FOR UNKNOWN INDICATION

REACTIONS (3)
  - Flushing [Recovering/Resolving]
  - Paraesthesia [Recovering/Resolving]
  - Drug ineffective [Recovered/Resolved]
